FAERS Safety Report 7608838-4 (Version None)
Quarter: 2011Q3

REPORT INFORMATION
  Report Type: 
  Country: None (occurrence: None)
  Receive Date: 20110714
  Receipt Date: 20110706
  Transmission Date: 20111222
  Serious: Yes (Death, Other)
  Sender: FDA-Public Use
  Company Number: FR-B.I. PHARMACEUTICALS,INC./RIDGEFIELD-2011-DE-03944GD

PATIENT

DRUGS (3)
  1. NEVIRAPINE [Suspect]
     Indication: HIV INFECTION
  2. LOPINAVIR/RITONAVIR [Suspect]
     Indication: HIV INFECTION
  3. DOCETAXEL [Suspect]
     Indication: NON-SMALL CELL LUNG CANCER STAGE IIIB

REACTIONS (2)
  - NEUTROPENIA [None]
  - SEPTIC SHOCK [None]
